FAERS Safety Report 10418190 (Version 1)
Quarter: 2014Q3

REPORT INFORMATION
  Report Type: Spontaneous
  Country: US (occurrence: None)
  Receive Date: 20140828
  Receipt Date: 20140828
  Transmission Date: 20150326
  Serious: Yes (Hospitalization)
  Sender: FDA-Public Use
  Company Number: None

PATIENT
  Age: 62 Year
  Sex: Male
  Weight: 90.72 kg

DRUGS (11)
  1. OMEPRAZOLE. [Concomitant]
     Active Substance: OMEPRAZOLE
  2. ODANSETRON [Concomitant]
     Active Substance: ONDANSETRON
  3. RIBAVIRIN. [Suspect]
     Active Substance: RIBAVIRIN
     Indication: HEPATITIS C
     Route: 048
     Dates: start: 20140127, end: 20140714
  4. NADOLOL. [Concomitant]
     Active Substance: NADOLOL
  5. MINOXIDIL. [Concomitant]
     Active Substance: MINOXIDIL
  6. SOFOSBUVIR [Suspect]
     Active Substance: SOFOSBUVIR
     Indication: HEPATITIS C
     Route: 048
     Dates: start: 20140127, end: 20140714
  7. CITROPRAM [Concomitant]
  8. AVODART [Concomitant]
     Active Substance: DUTASTERIDE
  9. IMIPRAMINE [Concomitant]
     Active Substance: IMIPRAMINE
  10. TRAZODONE [Concomitant]
     Active Substance: TRAZODONE HYDROCHLORIDE
  11. OXYCODONE [Concomitant]
     Active Substance: OXYCODONE

REACTIONS (2)
  - Erythema [None]
  - Peripheral swelling [None]

NARRATIVE: CASE EVENT DATE: 20140627
